FAERS Safety Report 6629507-3 (Version None)
Quarter: 2010Q1

REPORT INFORMATION
  Report Type: 
  Country: None (occurrence: None)
  Receive Date: 20100311
  Receipt Date: 20090720
  Transmission Date: 20100710
  Serious: No
  Sender: FDA-Public Use
  Company Number: US-BIOGENIDEC-2009BI022732

PATIENT
  Sex: Male

DRUGS (1)
  1. AVONEX [Suspect]
     Indication: MULTIPLE SCLEROSIS
     Route: 030
     Dates: start: 19970701, end: 19990119

REACTIONS (6)
  - ARTHRITIS [None]
  - ASTHENIA [None]
  - DEPRESSION [None]
  - FAECAL INCONTINENCE [None]
  - SCOLIOSIS [None]
  - URINARY INCONTINENCE [None]
